FAERS Safety Report 15408041 (Version 1)
Quarter: 2018Q3

REPORT INFORMATION
  Report Type: Spontaneous
  Country: IT (occurrence: IT)
  Receive Date: 20180920
  Receipt Date: 20180920
  Transmission Date: 20181010
  Serious: Yes (Other)
  Sender: FDA-Public Use
  Company Number: IT-JNJFOC-20180913826

PATIENT
  Age: 53 Year
  Sex: Female
  Weight: 57 kg

DRUGS (5)
  1. DESAMETASONE [Concomitant]
     Active Substance: DEXAMETHASONE
     Indication: PREMEDICATION
     Route: 065
     Dates: start: 20180515
  2. CAELYX [Suspect]
     Active Substance: DOXORUBICIN HYDROCHLORIDE
     Indication: METAPLASTIC BREAST CARCINOMA
     Route: 065
     Dates: start: 20180515
  3. TINSET [Concomitant]
     Active Substance: OXATOMIDE
     Indication: PREMEDICATION
     Route: 065
     Dates: start: 20180515
  4. RANITIDINE. [Concomitant]
     Active Substance: RANITIDINE
     Indication: PREMEDICATION
     Route: 065
     Dates: start: 20180515
  5. GRANISETRON [Concomitant]
     Active Substance: GRANISETRON
     Indication: PREMEDICATION
     Route: 065
     Dates: start: 20180515

REACTIONS (2)
  - Respiratory distress [Recovered/Resolved]
  - Erythema [Recovered/Resolved]

NARRATIVE: CASE EVENT DATE: 20180515
